FAERS Safety Report 4421162-6 (Version None)
Quarter: 2004Q3

REPORT INFORMATION
  Report Type: 
  Country: None (occurrence: None)
  Receive Date: 20040804
  Receipt Date: 20040729
  Transmission Date: 20050211
  Serious: Yes (Other)
  Sender: FDA-Public Use
  Company Number: GBWYE938129JUL04

PATIENT
  Age: 61 Year
  Sex: Female

DRUGS (2)
  1. EFFEXOR XR [Suspect]
     Dosage: 75 MG MORNING, 112.5MG EVENING ORAL
     Route: 048
     Dates: end: 20040729
  2. OXYBUTYNIN (OXYBUTYNIN) [Concomitant]

REACTIONS (6)
  - BLOOD BILIRUBIN INCREASED [None]
  - JAUNDICE [None]
  - LIVER FUNCTION TEST ABNORMAL [None]
  - OCULAR ICTERUS [None]
  - PRURITUS [None]
  - RASH ERYTHEMATOUS [None]
